FAERS Safety Report 18249589 (Version 4)
Quarter: 2020Q4

REPORT INFORMATION
  Report Type: Spontaneous
  Country: FR (occurrence: FR)
  Receive Date: 20200909
  Receipt Date: 20201028
  Transmission Date: 20210113
  Serious: Yes (Other)
  Sender: FDA-Public Use
  Company Number: FR-BAYER-2020-189270

PATIENT
  Age: 40 Year
  Sex: Female

DRUGS (3)
  1. ESSURE [Suspect]
     Active Substance: DEVICE
     Dosage: UNK
     Dates: start: 20141007, end: 20190827
  2. TRAMADOL. [Concomitant]
     Active Substance: TRAMADOL
     Dosage: UNK
     Dates: start: 20141007
  3. MIRENA [Suspect]
     Active Substance: LEVONORGESTREL
     Dosage: 20 ?G PER DAY, CONTINUOUSLY
     Route: 015
     Dates: end: 20141007

REACTIONS (44)
  - Depression [Unknown]
  - Device dislocation [Recovered/Resolved]
  - Dysmenorrhoea [Recovering/Resolving]
  - Speech disorder [Recovering/Resolving]
  - Device material issue [Unknown]
  - Amnesia [Unknown]
  - Ear disorder [Unknown]
  - Embedded device [Unknown]
  - Back pain [Recovering/Resolving]
  - Memory impairment [Recovering/Resolving]
  - Vision blurred [Recovering/Resolving]
  - Paraesthesia [Recovering/Resolving]
  - Musculoskeletal pain [Recovering/Resolving]
  - Eczema [Recovering/Resolving]
  - Weight increased [Unknown]
  - Rash pruritic [Unknown]
  - Bartholin^s cyst [Recovered/Resolved]
  - Pain [Recovering/Resolving]
  - Mental disorder [Not Recovered/Not Resolved]
  - Musculoskeletal pain [Unknown]
  - Aphasia [Unknown]
  - Anaemia [Unknown]
  - Presbyopia [Unknown]
  - Arrhythmia [Recovering/Resolving]
  - Adenomyosis [Recovered/Resolved]
  - Polymenorrhagia [Recovered/Resolved]
  - Fatigue [Recovering/Resolving]
  - Nightmare [Recovering/Resolving]
  - Neck pain [Recovering/Resolving]
  - Pharyngeal disorder [Unknown]
  - Abscess [Unknown]
  - Disturbance in attention [Recovering/Resolving]
  - Initial insomnia [Recovering/Resolving]
  - Tremor [Recovering/Resolving]
  - Staphylococcal infection [Unknown]
  - Loss of libido [Recovering/Resolving]
  - Tendonitis [Recovering/Resolving]
  - Pollakiuria [Recovering/Resolving]
  - Dyspareunia [Unknown]
  - Pelvic pain [Recovered/Resolved]
  - Headache [Recovering/Resolving]
  - Alopecia [Recovering/Resolving]
  - Dizziness [Recovering/Resolving]
  - Nasal disorder [Unknown]

NARRATIVE: CASE EVENT DATE: 20141007
